FAERS Safety Report 5579015-6 (Version None)
Quarter: 2008Q1

REPORT INFORMATION
  Report Type: 
  Country: None (occurrence: None)
  Receive Date: 20080102
  Receipt Date: 20071224
  Transmission Date: 20080703
  Serious: Yes (Hospitalization)
  Sender: FDA-Public Use
  Company Number: AU-ASTRAZENECA-2007AP07887

PATIENT
  Age: 65 Year
  Sex: Male

DRUGS (10)
  1. CRESTOR [Suspect]
     Route: 048
     Dates: start: 20070702
  2. CRESTOR [Suspect]
     Route: 048
     Dates: start: 20070906, end: 20071122
  3. IV CONTRAST MEDIUM [Suspect]
  4. ATACAND HCT [Concomitant]
     Dosage: LONG TERM USE
  5. ATACAND [Concomitant]
     Dates: start: 20071213
  6. CECLOR [Concomitant]
     Indication: INFECTION
     Dates: start: 20070903
  7. CECLOR [Concomitant]
     Indication: DYSPNOEA
     Dates: start: 20070903
  8. DITROPAN [Concomitant]
     Indication: POLLAKIURIA
  9. LIPITOR [Concomitant]
     Dates: start: 20070416
  10. LIPITOR [Concomitant]
     Dates: start: 20070524

REACTIONS (9)
  - EPISTAXIS [None]
  - HEPATOMEGALY [None]
  - INSOMNIA [None]
  - LETHARGY [None]
  - LYMPHOPENIA [None]
  - MALAISE [None]
  - MYALGIA [None]
  - NORMOCHROMIC NORMOCYTIC ANAEMIA [None]
  - RENAL FAILURE [None]
